FAERS Safety Report 18412510 (Version 2)
Quarter: 2020Q4

REPORT INFORMATION
  Report Type: Spontaneous
  Country: ES (occurrence: ES)
  Receive Date: 20201021
  Receipt Date: 20201106
  Transmission Date: 20210114
  Serious: Yes (Life-Threatening, Hospitalization, Other)
  Sender: FDA-Public Use
  Company Number: ES-PFIZER INC-2020406103

PATIENT
  Age: 8 Year
  Sex: Female

DRUGS (4)
  1. METHOTREXATE. [Concomitant]
     Active Substance: METHOTREXATE
     Indication: COMPLICATIONS OF TRANSPLANT SURGERY
     Dosage: UNK
     Dates: start: 199803, end: 199803
  2. CYCLOPHOSPHAMIDE. [Concomitant]
     Active Substance: CYCLOPHOSPHAMIDE
     Indication: COMPLICATIONS OF TRANSPLANT SURGERY
     Dosage: 60 MG/KG ON DAYS -3 AND -2
     Dates: start: 199803, end: 199803
  3. CICLOSPORIN [Suspect]
     Active Substance: CYCLOSPORINE
     Indication: COMPLICATIONS OF TRANSPLANT SURGERY
     Dosage: UNK
     Dates: start: 199803
  4. METHYLPREDNISOLONE SODIUM SUCCINATE. [Suspect]
     Active Substance: METHYLPREDNISOLONE SODIUM SUCCINATE
     Indication: COMPLICATIONS OF TRANSPLANT SURGERY
     Dosage: UNK
     Dates: start: 199803, end: 199804

REACTIONS (2)
  - Idiopathic intracranial hypertension [Recovered/Resolved]
  - Sinusitis [Recovered/Resolved]

NARRATIVE: CASE EVENT DATE: 199806
